FAERS Safety Report 21193165 (Version 1)
Quarter: 2022Q3

REPORT INFORMATION
  Report Type: Spontaneous
  Country: FR (occurrence: FR)
  Receive Date: 20220810
  Receipt Date: 20220810
  Transmission Date: 20221027
  Serious: Yes (Other)
  Sender: FDA-Public Use
  Company Number: FR-SA-SAC20210504001234

PATIENT
  Age: 76 Year
  Sex: Female

DRUGS (7)
  1. KARDEGIC [Suspect]
     Active Substance: ASPIRIN DL-LYSINE
     Indication: Platelet disorder
     Dosage: 75 MG
  2. KARDEGIC [Suspect]
     Active Substance: ASPIRIN DL-LYSINE
     Indication: Hypertension
     Dosage: 160 MG
  3. PLAVIX [Suspect]
     Active Substance: CLOPIDOGREL BISULFATE
     Dosage: UNK
  4. VALSARTAN [Concomitant]
     Active Substance: VALSARTAN
     Dosage: TAREG TABLET 160 MG  1 IN THE MORNING/ TAREG 80 MG 1 IN THE EVENING
  5. DAIVOBET [Concomitant]
     Active Substance: BETAMETHASONE DIPROPIONATE\CALCIPOTRIENE
     Indication: Psoriasis
     Dosage: UNK
  6. EZETIMIBE [Concomitant]
     Active Substance: EZETIMIBE
     Dosage: 10 MG 1 IN THE MORNING
  7. VALSARTAN [Concomitant]
     Active Substance: VALSARTAN
     Dosage: 1 TAB 80 MG IN THE EVENING

REACTIONS (7)
  - Peripheral artery thrombosis [Unknown]
  - Peripheral artery stenosis [Unknown]
  - Mucosal disorder [Unknown]
  - Abdominal discomfort [Unknown]
  - Haematoma [Unknown]
  - Dyspepsia [Unknown]
  - Product use in unapproved indication [Unknown]
